FAERS Safety Report 8120795-3 (Version None)
Quarter: 2012Q1

REPORT INFORMATION
  Report Type: 
  Country: None (occurrence: None)
  Receive Date: 20120207
  Receipt Date: 20120123
  Transmission Date: 20120608
  Serious: Yes (Life-Threatening, Hospitalization, Other)
  Sender: FDA-Public Use
  Company Number: DE-BAYER-2012-007313

PATIENT
  Age: 80 Year
  Sex: Female
  Weight: 49 kg

DRUGS (9)
  1. PIPERACILLIN [Suspect]
     Indication: PNEUMONIA PRIMARY ATYPICAL
     Dosage: 2 G, TID
     Route: 042
     Dates: start: 20110608, end: 20110628
  2. CIPROFLOXACIN [Suspect]
     Indication: PNEUMONIA PRIMARY ATYPICAL
     Dosage: 500 MG, BID
     Dates: start: 20110610, end: 20110627
  3. CIPROFLOXACIN [Suspect]
     Dosage: 500 MG, QD
     Route: 048
     Dates: start: 20110628, end: 20110628
  4. PIPERACILLIN [Suspect]
     Dosage: 2 G, QD
     Route: 042
  5. COMBACTAM [Suspect]
     Indication: PNEUMONIA PRIMARY ATYPICAL
     Dosage: 3 G, UNK
     Route: 042
     Dates: start: 20110609, end: 20110627
  6. COMBACTAM [Suspect]
     Dosage: 1 G, QD
     Route: 042
     Dates: start: 20110608, end: 20110608
  7. COMBACTAM [Suspect]
     Dosage: 1 G, UNK
     Route: 042
     Dates: start: 20110628, end: 20110628
  8. CEFTRIAXON [Concomitant]
     Indication: PNEUMONIA PRIMARY ATYPICAL
     Dosage: UNK
     Dates: start: 20110529, end: 20110608
  9. ZIENAM [Suspect]
     Indication: PNEUMONIA PRIMARY ATYPICAL
     Dosage: 500 MG, TID
     Route: 042
     Dates: start: 20110701, end: 20110708

REACTIONS (1)
  - RENAL FAILURE ACUTE [None]
